FAERS Safety Report 11156492 (Version 2)
Quarter: 2015Q3

REPORT INFORMATION
  Report Type: Spontaneous
  Country: US (occurrence: US)
  Receive Date: 20150602
  Receipt Date: 20150723
  Transmission Date: 20151125
  Serious: No
  Sender: FDA-Public Use
  Company Number: US-PFIZER INC-2015183406

PATIENT
  Age: 47 Year
  Sex: Male

DRUGS (2)
  1. CELEBREX [Suspect]
     Active Substance: CELECOXIB
     Indication: CERVICAL RADICULOPATHY
     Dosage: 1 CAPSULE (200 MG) EVERY MORNING
     Route: 048
     Dates: start: 20130417, end: 201305
  2. CELEBREX [Suspect]
     Active Substance: CELECOXIB
     Indication: NECK PAIN

REACTIONS (2)
  - Drug hypersensitivity [Unknown]
  - Haemoptysis [Recovered/Resolved]

NARRATIVE: CASE EVENT DATE: 2013
